FAERS Safety Report 26109356 (Version 1)
Quarter: 2025Q4

REPORT INFORMATION
  Report Type: Spontaneous
  Country: EU (occurrence: EU)
  Receive Date: 20251201
  Receipt Date: 20251201
  Transmission Date: 20260117
  Serious: Yes (Life-Threatening, Hospitalization, Other)
  Sender: MYLAN
  Company Number: EU-MYLANLABS-2025M1100580

PATIENT
  Age: 79 Year
  Sex: Female

DRUGS (1)
  1. CLOZAPINE [Suspect]
     Active Substance: CLOZAPINE
     Indication: Product used for unknown indication
     Dosage: 100 MILLIGRAM, PM (IN THE EVENING)

REACTIONS (6)
  - Hospitalisation [Unknown]
  - Wrong product administered [Unknown]
  - Loss of consciousness [Unknown]
  - Incontinence [Unknown]
  - Disorientation [Unknown]
  - Asthenia [Unknown]

NARRATIVE: CASE EVENT DATE: 20251108
